FAERS Safety Report 5924452-0 (Version None)
Quarter: 2008Q4

REPORT INFORMATION
  Report Type: 
  Country: None (occurrence: None)
  Receive Date: 20081020
  Receipt Date: 20081013
  Transmission Date: 20090506
  Serious: No
  Sender: FDA-Public Use
  Company Number: US-B.I. PHARMACEUTICALS,INC./RIDGEFIELD-2008-BP-15766BP

PATIENT
  Age: 74 Year
  Sex: Female

DRUGS (8)
  1. MIRAPEX [Suspect]
     Indication: RESTLESS LEGS SYNDROME
     Dosage: .125MG
     Route: 048
     Dates: start: 20081009, end: 20081010
  2. SYNTHROID [Concomitant]
  3. FOSAMAX [Concomitant]
  4. LORAZEPAM [Concomitant]
  5. ATENELOL [Concomitant]
  6. NASOCERT [Concomitant]
  7. CLARITIN [Concomitant]
  8. OCUVLTE [Concomitant]

REACTIONS (3)
  - ABDOMINAL PAIN [None]
  - DIARRHOEA [None]
  - NAUSEA [None]
